FAERS Safety Report 18091141 (Version 1)
Quarter: 2020Q3

REPORT INFORMATION
  Report Type: Spontaneous
  Country: US (occurrence: US)
  Receive Date: 20200729
  Receipt Date: 20200729
  Transmission Date: 20201103
  Serious: No
  Sender: FDA-Public Use
  Company Number: None

PATIENT
  Age: 71 Year
  Sex: Female
  Weight: 93.89 kg

DRUGS (14)
  1. NEUPOGEN [Suspect]
     Active Substance: FILGRASTIM
     Indication: BREAST CANCER
     Dosage: ?          OTHER FREQUENCY:DAY3?5,10?12,17?19;?
     Route: 058
     Dates: start: 20200220, end: 20200729
  2. LACTULOSE. [Concomitant]
     Active Substance: LACTULOSE
  3. LOSARTAN. [Concomitant]
     Active Substance: LOSARTAN
  4. DEXAMETHASONE. [Concomitant]
     Active Substance: DEXAMETHASONE
  5. PROTONIX [Concomitant]
     Active Substance: PANTOPRAZOLE SODIUM
  6. METFORMIN [Concomitant]
     Active Substance: METFORMIN HYDROCHLORIDE
  7. METOPROLOL. [Concomitant]
     Active Substance: METOPROLOL
  8. MORPHINE [Concomitant]
     Active Substance: MORPHINE
  9. ATORVASTATIN [Concomitant]
     Active Substance: ATORVASTATIN
  10. LETROZOLE. [Concomitant]
     Active Substance: LETROZOLE
  11. ASPIRIN. [Concomitant]
     Active Substance: ASPIRIN
  12. ZOFRAN [Concomitant]
     Active Substance: ONDANSETRON HYDROCHLORIDE
  13. METHADONE [Concomitant]
     Active Substance: METHADONE HYDROCHLORIDE
  14. SENNA [Concomitant]
     Active Substance: SENNA LEAF\SENNOSIDES\SENNOSIDES A AND B

REACTIONS (1)
  - Death [None]

NARRATIVE: CASE EVENT DATE: 20200729
